FAERS Safety Report 6385784-8 (Version None)
Quarter: 2009Q4

REPORT INFORMATION
  Report Type: 
  Country: None (occurrence: None)
  Receive Date: 20091002
  Receipt Date: 20081007
  Transmission Date: 20100525
  Serious: No
  Sender: FDA-Public Use
  Company Number: US-ASTRAZENECA-2008UW21861

PATIENT
  Age: 71 Year
  Sex: Female

DRUGS (3)
  1. ARIMIDEX [Suspect]
     Route: 048
     Dates: start: 20080301
  2. SYNTHROID [Concomitant]
  3. NASAL SPRAY [Concomitant]

REACTIONS (5)
  - ABDOMINAL DISCOMFORT [None]
  - DYSPHONIA [None]
  - OROPHARYNGEAL PAIN [None]
  - SLEEP DISORDER [None]
  - WEIGHT DECREASED [None]
